FAERS Safety Report 7529452-5 (Version None)
Quarter: 2011Q2

REPORT INFORMATION
  Report Type: 
  Country: None (occurrence: None)
  Receive Date: 20110520
  Receipt Date: 20110303
  Transmission Date: 20111010
  Serious: No
  Sender: FDA-Public Use
  Company Number: 028546

PATIENT
  Sex: Female
  Weight: 61.2 kg

DRUGS (5)
  1. LACOSAMIDE [Suspect]
     Indication: CONVULSION
     Dosage: (50 MG BID ORAL) ; (100 MG BID ORAL)
     Route: 048
     Dates: start: 20101201, end: 20110203
  2. LACOSAMIDE [Suspect]
     Indication: CONVULSION
     Dosage: (50 MG BID ORAL) ; (100 MG BID ORAL)
     Route: 048
     Dates: start: 20110205
  3. DILANTIN [Concomitant]
  4. CLONAZEPAM [Concomitant]
  5. DIAZEPAM [Concomitant]

REACTIONS (2)
  - NASOPHARYNGITIS [None]
  - NASAL CONGESTION [None]
